FAERS Safety Report 13787202 (Version 1)
Quarter: 2017Q3

REPORT INFORMATION
  Report Type: Spontaneous
  Country: US (occurrence: US)
  Receive Date: 20170725
  Receipt Date: 20170725
  Transmission Date: 20171127
  Serious: No
  Sender: FDA-Public Use
  Company Number: US-TEVA-707337USA

PATIENT
  Sex: Female

DRUGS (1)
  1. ZEBETA [Suspect]
     Active Substance: BISOPROLOL FUMARATE
     Route: 065

REACTIONS (2)
  - Cardiomegaly [Unknown]
  - Vocal cord disorder [Unknown]
